FAERS Safety Report 8886617 (Version 4)
Quarter: 2013Q1

REPORT INFORMATION
  Report Type: Spontaneous
  Country: JP (occurrence: JP)
  Receive Date: 20121105
  Receipt Date: 20130218
  Transmission Date: 20140127
  Serious: Yes (Hospitalization)
  Sender: FDA-Public Use
  Company Number: JP-ELI_LILLY_AND_COMPANY-JP201210004019

PATIENT
  Age: 75 Year
  Sex: Female

DRUGS (2)
  1. FORTEO [Suspect]
     Dosage: UNK
     Route: 058
     Dates: start: 20120917, end: 201210
  2. FORTEO [Suspect]
     Dosage: UNK
     Route: 058
     Dates: start: 201210

REACTIONS (12)
  - Cataract [Recovered/Resolved]
  - Dysphagia [Unknown]
  - Swelling [Recovering/Resolving]
  - Blood glucose increased [Unknown]
  - Musculoskeletal stiffness [Not Recovered/Not Resolved]
  - Sensation of heaviness [Not Recovered/Not Resolved]
  - Medication error [Unknown]
  - Eyelid oedema [Unknown]
  - Eczema [Unknown]
  - Dry skin [Unknown]
  - Abdominal pain upper [Unknown]
  - Fatigue [Unknown]
